FAERS Safety Report 5639164-0 (Version None)
Quarter: 2008Q1

REPORT INFORMATION
  Report Type: 
  Country: None (occurrence: None)
  Receive Date: 20080222
  Receipt Date: 20080130
  Transmission Date: 20080703
  Serious: Yes (Hospitalization)
  Sender: FDA-Public Use
  Company Number: 000#5#2008-00023

PATIENT
  Age: 76 Year
  Sex: Male
  Weight: 69 kg

DRUGS (5)
  1. ROTIGOTINE  PATCH (SILICONE) [Suspect]
     Indication: PARKINSON'S DISEASE
     Dosage: 8 MG/24H (8 MG/24H 1 IN 1 DAY(S)); TRANSDERMAL
     Route: 062
     Dates: start: 20071221, end: 20080114
  2. LORATADINE [Concomitant]
  3. INDOBUFEN (INDOBUFEN SODIUM) [Concomitant]
  4. LEVODOPA, BENSERAZIDE HYDROCHLORIDE (BENSERAZIDE HYDROCHLORIDE, LEVODO [Concomitant]
  5. MELEVODOPA [Concomitant]

REACTIONS (1)
  - CHOLECYSTITIS [None]
